FAERS Safety Report 5747042-1 (Version None)
Quarter: 2008Q2

REPORT INFORMATION
  Report Type: 
  Country: None (occurrence: None)
  Receive Date: 20080520
  Receipt Date: 20080506
  Transmission Date: 20081010
  Serious: Yes (Other)
  Sender: FDA-Public Use
  Company Number: MC200800222

PATIENT
  Sex: 0

DRUGS (2)
  1. ANGIOMAX [Suspect]
     Indication: DRUG USE FOR UNKNOWN INDICATION
  2. REOPRO [Suspect]
     Indication: ACUTE MYOCARDIAL INFARCTION

REACTIONS (2)
  - ACUTE MYOCARDIAL INFARCTION [None]
  - EXTRAVASATION [None]
